FAERS Safety Report 8885583 (Version 3)
Quarter: 2012Q4

REPORT INFORMATION
  Report Type: 
  Country: US (occurrence: US)
  Receive Date: 20121102
  Receipt Date: 20121119
  Transmission Date: 20130627
  Serious: Yes (Disabling, Other)
  Sender: FDA-Public Use
  Company Number: US-AMGEN-USASP2012066461

PATIENT
  Age: 52 Year
  Sex: Female

DRUGS (7)
  1. ENBREL [Suspect]
     Indication: RHEUMATOID ARTHRITIS
     Dosage: 50 mg, qwk
     Route: 058
     Dates: start: 201208
  2. DURAGESIC /00174601/ [Concomitant]
     Indication: PAIN
     Dosage: 25 mg/h q 72h
  3. SULFASALAZINE [Concomitant]
     Dosage: 500 mg, 3 tab bid
     Route: 048
  4. MOBIC [Concomitant]
     Indication: PAIN
     Dosage: 7.5 mg, 1-2 tab qd
     Route: 048
  5. ULTRAM [Concomitant]
     Indication: PAIN
     Dosage: 50 mg, one tab q 8h prn
     Route: 048
  6. FOSAMAX [Concomitant]
     Indication: OSTEOPENIA
     Dosage: 70 mg, qwk
     Route: 048
  7. CALCIUM PLUS VITAMIN D [Concomitant]
     Indication: OSTEOPENIA
     Dosage: UNK

REACTIONS (8)
  - Back pain [Not Recovered/Not Resolved]
  - Colonoscopy [Recovered/Resolved]
  - Chemical burn of skin [Not Recovered/Not Resolved]
  - Red blood cell sedimentation rate increased [Unknown]
  - Joint range of motion decreased [Unknown]
  - Musculoskeletal stiffness [Unknown]
  - Dyspnoea exertional [Unknown]
  - Injection site bruising [Recovered/Resolved]
